FAERS Safety Report 4989524-6 (Version None)
Quarter: 2006Q2

REPORT INFORMATION
  Report Type: 
  Country: None (occurrence: None)
  Receive Date: 20060426
  Receipt Date: 20060417
  Transmission Date: 20061013
  Serious: Yes (Other)
  Sender: FDA-Public Use
  Company Number: 2006052472

PATIENT
  Age: 40 Year
  Sex: Female

DRUGS (4)
  1. DILANTIN [Suspect]
     Indication: CONVULSION
  2. LAMICTAL [Suspect]
     Indication: EPILEPSY
     Dosage: 225 MG (75 MG, 3 IN 1 D), ORAL
     Route: 048
     Dates: start: 19990101
  3. PRIMIDONE [Concomitant]
  4. CARBAMAZEPINE [Concomitant]

REACTIONS (5)
  - CONVULSION [None]
  - DRUG LEVEL INCREASED [None]
  - OVARIAN CYST [None]
  - RED BLOOD CELL COUNT DECREASED [None]
  - WHITE BLOOD CELL COUNT DECREASED [None]
